FAERS Safety Report 8908973 (Version 2)
Quarter: 2012Q4

REPORT INFORMATION
  Report Type: 
  Country: US (occurrence: US)
  Receive Date: 20121114
  Receipt Date: 20121127
  Transmission Date: 20130627
  Serious: Yes (Death, Hospitalization)
  Sender: FDA-Public Use
  Company Number: US-ACTELION-A-NJ2012-72335

PATIENT
  Age: 75 Year
  Sex: Female

DRUGS (7)
  1. TRACLEER [Suspect]
     Indication: PULMONARY ARTERIAL HYPERTENSION
     Dosage: UNK
     Route: 048
     Dates: start: 20110601, end: 20121115
  2. VENTAVIS [Suspect]
     Indication: PULMONARY ARTERIAL HYPERTENSION
     Dosage: 5 mcg, 4-6 x day
     Route: 055
     Dates: start: 20110517, end: 201211
  3. ADCIRCA [Concomitant]
  4. BENICAR [Concomitant]
  5. PREDNISONE [Concomitant]
  6. HYDRALAZINE [Concomitant]
  7. INDAPAMIDE [Concomitant]

REACTIONS (4)
  - Interstitial lung disease [Fatal]
  - Aortic dissection [Recovered/Resolved]
  - Chest pain [Recovered/Resolved]
  - Back pain [Recovered/Resolved]
